FAERS Safety Report 4900086-1 (Version None)
Quarter: 2006Q1

REPORT INFORMATION
  Report Type: 
  Country: None (occurrence: None)
  Receive Date: 20060201
  Receipt Date: 20051229
  Transmission Date: 20060701
  Serious: Yes (Hospitalization)
  Sender: FDA-Public Use
  Company Number: USA0508105127

PATIENT
  Age: 43 Year
  Sex: Female
  Weight: 75.9775 kg

DRUGS (41)
  1. FORTEO [Suspect]
     Indication: OSTEOPOROSIS
     Dosage: DAILY (1/.D),
     Dates: start: 20050601
  2. CYMBALTA [Suspect]
  3. PREDNISONE [Concomitant]
  4. FORTEO PEN, 150MCG/ML (3ML) [Concomitant]
  5. FELBATOL [Concomitant]
  6. TOPAMAX /AUS/(TOPIRAMATE) [Concomitant]
  7. IMITREX ^CERENEX^ (SUMATRIPTAN SUCCINATE) [Concomitant]
  8. PROVIGIL [Concomitant]
  9. AMBIEN [Concomitant]
  10. PREDNISONE [Concomitant]
  11. ZYRTEC /GFR/(CETIRIZINE HYDROCHLORIDE) [Concomitant]
  12. LASIX [Concomitant]
  13. PROLEX D (GUAIFENESIN, PHENYLEPHRINE HYDROCHLORIDE) [Concomitant]
  14. SPIRIVA [Concomitant]
  15. ADVAIR DISKUS 100/50 [Concomitant]
  16. ALBUTEROL [Concomitant]
  17. DEXAMETHASONE [Concomitant]
  18. VALIUM /NET/(DIAZEPAM) [Concomitant]
  19. CELEXA [Concomitant]
  20. PROTONIX [Concomitant]
  21. PERI-COLACE [Concomitant]
  22. MILK OF MAGNESIA TAB [Concomitant]
  23. PHENERGAN [Concomitant]
  24. NORFLEX [Concomitant]
  25. LIDODERM (LIDOCAINE) [Concomitant]
  26. MULTIVIT (VITAMINS NOS) [Concomitant]
  27. CALCIUM CARBONATE [Concomitant]
  28. VITAMIN E [Concomitant]
  29. VITAMIN B12 [Concomitant]
  30. POTASSIUM CHLORIDE [Concomitant]
  31. VITAMIN B1 AND B6 (PYRIDOXINE, THIAMINE) [Concomitant]
  32. PROVIGIL [Concomitant]
  33. PERCOCET [Concomitant]
  34. OXYCONTIN [Concomitant]
  35. DHE (DEHYDROEMETINE) [Concomitant]
  36. RELPAX (ELETRIPTAN HYDROBROMIDE) [Concomitant]
  37. TRAZODONE [Concomitant]
  38. LORATADINE [Concomitant]
  39. METHOCARBAMOL [Concomitant]
  40. SENNA [Concomitant]
  41. FORTEO PEN (150MCG/ML) (FORTEO PEN 150MCG/ML (3ML)) PEN, DISPOSABLE [Concomitant]

REACTIONS (15)
  - ABDOMINAL PAIN [None]
  - ARTHRALGIA [None]
  - BRONCHITIS CHRONIC [None]
  - CHEST PAIN [None]
  - CHRONIC OBSTRUCTIVE PULMONARY DISEASE [None]
  - CONDITION AGGRAVATED [None]
  - COUGH [None]
  - CYST [None]
  - FALL [None]
  - FATIGUE [None]
  - INFLUENZA [None]
  - MIGRAINE [None]
  - OTORRHOEA [None]
  - SINUS CONGESTION [None]
  - TYMPANIC MEMBRANE PERFORATION [None]
